FAERS Safety Report 7180103-1 (Version None)
Quarter: 2010Q4

REPORT INFORMATION
  Report Type: 
  Country: None (occurrence: None)
  Receive Date: 20101221
  Receipt Date: 20101215
  Transmission Date: 20110411
  Serious: Yes (Hospitalization, Other)
  Sender: FDA-Public Use
  Company Number: PHHY2010US85103

PATIENT
  Age: 20 Year
  Sex: Male

DRUGS (4)
  1. VANCOMYCIN [Suspect]
     Indication: TENOSYNOVITIS
  2. CEFTRIAXONE SODIUM [Suspect]
     Dosage: ONE DOSE
  3. DOXYCYCLINE (NGX) [Suspect]
     Dosage: 2 DAYS
  4. COTRIM [Suspect]

REACTIONS (21)
  - DERMATITIS EXFOLIATIVE [None]
  - DISSEMINATED INTRAVASCULAR COAGULATION [None]
  - DRUG ERUPTION [None]
  - DRUG RASH WITH EOSINOPHILIA AND SYSTEMIC SYMPTOMS [None]
  - EOSINOPHIL COUNT INCREASED [None]
  - HUMAN HERPESVIRUS 6 INFECTION [None]
  - LICHENOID KERATOSIS [None]
  - LYMPHADENOPATHY [None]
  - LYMPHOCYTE COUNT DECREASED [None]
  - MYALGIA [None]
  - PYREXIA [None]
  - RASH [None]
  - RENAL FAILURE [None]
  - RESPIRATORY FAILURE [None]
  - SEPTIC SHOCK [None]
  - SKIN EXFOLIATION [None]
  - SPLENIC INFARCTION [None]
  - SWELLING [None]
  - TRANSAMINASES INCREASED [None]
  - UPPER RESPIRATORY TRACT INFECTION [None]
  - WHITE BLOOD CELL COUNT INCREASED [None]
